FAERS Safety Report 9046582 (Version 1)
Quarter: 2013Q2

REPORT INFORMATION
  Report Type: Spontaneous
  Country: US (occurrence: None)
  Receive Date: 20130128
  Receipt Date: 20130128
  Transmission Date: 20140414
  Serious: Yes (Hospitalization)
  Sender: FDA-Public Use
  Company Number: None

PATIENT
  Age: 74 Year
  Sex: Male
  Weight: 78 kg

DRUGS (10)
  1. GEMCITABINE [Suspect]
     Indication: PANCREATIC CARCINOMA
     Dosage: Q2 WEEKS X2
     Route: 042
     Dates: start: 20130109
  2. HYDROXYCHLOROQUINE [Suspect]
     Indication: PANCREATIC CARCINOMA
     Dosage: X 31 DAYS
     Route: 048
     Dates: start: 20130107
  3. NORVASC [Concomitant]
  4. ASPIRIN [Concomitant]
  5. LIPITOR [Concomitant]
  6. LEVOTHYROXINE [Concomitant]
  7. RITUXAN [Concomitant]
  8. DETROL [Concomitant]
  9. OXYCODONE [Concomitant]
  10. ZOFRAN [Concomitant]

REACTIONS (4)
  - Fatigue [None]
  - Asthenia [None]
  - Pyrexia [None]
  - Abdominal pain [None]
